FAERS Safety Report 24556451 (Version 2)
Quarter: 2025Q2

REPORT INFORMATION
  Report Type: Spontaneous
  Country: JP (occurrence: JP)
  Receive Date: 20241028
  Receipt Date: 20250401
  Transmission Date: 20250716
  Serious: Yes (Death)
  Sender: JOHNSON AND JOHNSON
  Company Number: JP-JNJFOC-20240950300

PATIENT

DRUGS (1)
  1. UPTRAVI [Suspect]
     Active Substance: SELEXIPAG
     Indication: Pulmonary arterial hypertension
     Route: 048

REACTIONS (5)
  - Pulmonary hypertension [Fatal]
  - Hepatic enzyme increased [Unknown]
  - Malaise [Unknown]
  - Palpitations [Unknown]
  - Oropharyngeal discomfort [Unknown]
